FAERS Safety Report 16635738 (Version 1)
Quarter: 2019Q3

REPORT INFORMATION
  Report Type: Spontaneous
  Country: US (occurrence: US)
  Receive Date: 20190726
  Receipt Date: 20190726
  Transmission Date: 20191004
  Serious: Yes (Hospitalization, Other)
  Sender: FDA-Public Use
  Company Number: US-TETRAPHASE PHARMACEUTICALS, INC.-2019TP000109

PATIENT
  Sex: Male

DRUGS (1)
  1. XERAVA [Suspect]
     Active Substance: ERAVACYCLINE DIHYDROCHLORIDE
     Indication: ABDOMINAL INFECTION
     Route: 042
     Dates: start: 2019, end: 20190714

REACTIONS (1)
  - Hepatic failure [Not Recovered/Not Resolved]
